FAERS Safety Report 8383463-9 (Version None)
Quarter: 2012Q2

REPORT INFORMATION
  Report Type: 
  Country: None (occurrence: None)
  Receive Date: 20120524
  Receipt Date: 20120522
  Transmission Date: 20120825
  Serious: Yes (Other)
  Sender: FDA-Public Use
  Company Number: PHFR2011GB04841

PATIENT
  Sex: Male

DRUGS (2)
  1. CLOZARIL [Suspect]
     Dates: start: 20120102
  2. CLOZARIL [Suspect]
     Route: 048
     Dates: start: 20110815

REACTIONS (4)
  - PLATELET COUNT DECREASED [None]
  - SCHIZOPHRENIA, PARANOID TYPE [None]
  - RESTLESS LEGS SYNDROME [None]
  - SALIVARY HYPERSECRETION [None]
